FAERS Safety Report 16014369 (Version 1)
Quarter: 2019Q1

REPORT INFORMATION
  Report Type: Spontaneous
  Country: TR (occurrence: TR)
  Receive Date: 20190227
  Receipt Date: 20190227
  Transmission Date: 20190418
  Serious: Yes (Hospitalization, Other)
  Sender: FDA-Public Use
  Company Number: PHHY2019TR043381

PATIENT
  Sex: Male

DRUGS (1)
  1. URIKOLIZ [Suspect]
     Active Substance: ALLOPURINOL
     Indication: ACID BASE BALANCE
     Dosage: UNK
     Route: 065

REACTIONS (5)
  - Renal failure [Unknown]
  - Pyrexia [Unknown]
  - Rash [Unknown]
  - Swelling [Unknown]
  - Toxicity to various agents [Unknown]
